FAERS Safety Report 6355415-1 (Version None)
Quarter: 2009Q3

REPORT INFORMATION
  Report Type: 
  Country: None (occurrence: None)
  Receive Date: 20090914
  Receipt Date: 20090817
  Transmission Date: 20100115
  Serious: Yes (Other)
  Sender: FDA-Public Use
  Company Number: US-PFIZER INC-2009207404

PATIENT
  Sex: Female
  Weight: 122 kg

DRUGS (10)
  1. LYRICA [Suspect]
     Indication: PAIN
     Dosage: 75 MG, 1X/DAY
     Route: 048
     Dates: start: 20090424
  2. LYRICA [Suspect]
     Indication: FIBROMYALGIA
  3. MAXZIDE [Concomitant]
     Indication: HYPERTENSION
  4. ACETAMINOPHEN [Concomitant]
  5. ALBUTEROL [Concomitant]
  6. ANASTROZOLE [Concomitant]
  7. CYMBALTA [Concomitant]
  8. TAMOXIFEN CITRATE [Concomitant]
  9. BUPROPION [Concomitant]
  10. FIORICET W/ CODEINE [Concomitant]

REACTIONS (3)
  - ANAPHYLACTIC REACTION [None]
  - HYPERSENSITIVITY [None]
  - HYPERTENSION [None]
